FAERS Safety Report 10120026 (Version 2)
Quarter: 2014Q2

REPORT INFORMATION
  Report Type: Report from Study
  Country: US (occurrence: US)
  Receive Date: 20140426
  Receipt Date: 20140507
  Transmission Date: 20141212
  Serious: Yes (Other)
  Sender: FDA-Public Use
  Company Number: PHEH2014US008126

PATIENT
  Sex: Male

DRUGS (3)
  1. GLEEVEC [Suspect]
     Indication: LEUKAEMIA
     Dosage: 400 MG, QD
     Route: 048
  2. WARFARIN [Concomitant]
     Dosage: 2MG 5 DAYS A WEEK AND 3MG 2 DAYS A WEEK
     Route: 048
  3. PLAVIX [Concomitant]
     Dosage: UNK UKN, UNK
     Route: 048

REACTIONS (3)
  - Cerebrovascular accident [Unknown]
  - Rectal haemorrhage [Unknown]
  - Epistaxis [Unknown]
